FAERS Safety Report 5390036-9 (Version None)
Quarter: 2007Q3

REPORT INFORMATION
  Report Type: 
  Country: None (occurrence: None)
  Receive Date: 20070718
  Receipt Date: 20070706
  Transmission Date: 20080115
  Serious: Yes (Death)
  Sender: FDA-Public Use
  Company Number: US-PURDUE-USA_2007_0028225

PATIENT
  Age: 16 Month
  Sex: Male

DRUGS (4)
  1. OXYCODONE HCL [Suspect]
     Indication: ACCIDENTAL DRUG INTAKE BY CHILD
     Route: 048
  2. DIPHENHYDRAMINE HCL [Suspect]
     Indication: ACCIDENTAL DRUG INTAKE BY CHILD
     Route: 048
  3. TRAMADOL HCL [Suspect]
     Indication: ACCIDENTAL DRUG INTAKE BY CHILD
     Route: 048
  4. NAPROXEN [Suspect]
     Indication: ACCIDENTAL DRUG INTAKE BY CHILD
     Route: 048

REACTIONS (2)
  - ACCIDENTAL DRUG INTAKE BY CHILD [None]
  - RESPIRATORY ARREST [None]
